FAERS Safety Report 7626839-7 (Version None)
Quarter: 2011Q3

REPORT INFORMATION
  Report Type: 
  Country: None (occurrence: None)
  Receive Date: 20110713
  Receipt Date: 20110708
  Transmission Date: 20111222
  Serious: Yes (Hospitalization)
  Sender: FDA-Public Use
  Company Number: 201110043

PATIENT
  Age: 32 Year
  Sex: Female

DRUGS (2)
  1. LIORESAL [Suspect]
     Indication: MUSCLE SPASTICITY
     Dosage: 100 MCG, DAILY, INTRATHECAL
     Route: 037
  2. DILAUDID [Concomitant]

REACTIONS (8)
  - HEADACHE [None]
  - NEOPLASM [None]
  - TREATMENT NONCOMPLIANCE [None]
  - DEVICE MALFUNCTION [None]
  - MASS [None]
  - VOMITING [None]
  - WITHDRAWAL SYNDROME [None]
  - MUSCLE SPASMS [None]
